FAERS Safety Report 10028622 (Version 1)
Quarter: 2014Q1

REPORT INFORMATION
  Report Type: Spontaneous
  Country: CA (occurrence: CA)
  Receive Date: 20140321
  Receipt Date: 20140321
  Transmission Date: 20141002
  Serious: Yes (Other)
  Sender: FDA-Public Use
  Company Number: CA-GLAXOSMITHKLINE-A1065934A

PATIENT
  Age: 43 Year
  Sex: Male

DRUGS (11)
  1. ADVAIR [Suspect]
     Indication: PRODUCT USED FOR UNKNOWN INDICATION
     Route: 055
  2. FLUTICASONE [Suspect]
     Indication: PRODUCT USED FOR UNKNOWN INDICATION
     Route: 055
  3. NORVIR [Suspect]
     Indication: PRODUCT USED FOR UNKNOWN INDICATION
     Route: 065
  4. ABACAVIR [Concomitant]
  5. CITALOPRAM [Concomitant]
  6. GLYBURIDE [Concomitant]
  7. LAMIVUDINE-HIV [Concomitant]
  8. METFORMIN [Concomitant]
  9. REYATAZ [Concomitant]
  10. RISPERIDONE [Concomitant]
  11. VALPROATE [Concomitant]

REACTIONS (3)
  - Cushing^s syndrome [Recovered/Resolved]
  - Plasmablastic lymphoma [Recovered/Resolved]
  - Drug interaction [Recovered/Resolved]
